FAERS Safety Report 22235367 (Version 1)
Quarter: 2023Q2

REPORT INFORMATION
  Report Type: Spontaneous
  Country: IT (occurrence: IT)
  Receive Date: 20230420
  Receipt Date: 20230420
  Transmission Date: 20230721
  Serious: Yes (Hospitalization)
  Sender: FDA-Public Use
  Company Number: None

PATIENT
  Age: 74 Year
  Sex: Female
  Weight: 65 kg

DRUGS (10)
  1. AMIKACIN [Suspect]
     Active Substance: AMIKACIN
     Indication: Urinary tract infection
     Dosage: 500 MG /DAY IN 100 ML OF SOL. PHYSIOLOGICAL
     Route: 065
     Dates: start: 20230315, end: 20230323
  2. COLISTIN SULFATE [Concomitant]
     Active Substance: COLISTIN SULFATE
     Indication: Product used for unknown indication
     Dosage: 2 MIU/DAY ON NON HD DAYS - 4 MIU/DAY ON DH DAYS
     Route: 065
     Dates: start: 20230306, end: 20230316
  3. LASIX [Concomitant]
     Active Substance: FUROSEMIDE
     Indication: Product used for unknown indication
     Dosage: 500 MG - 1/4 CPR/DAY
     Route: 065
     Dates: start: 20230313
  4. RENVELA [Concomitant]
     Active Substance: SEVELAMER CARBONATE
     Indication: Product used for unknown indication
     Dosage: 800 MG WITH MEAL
     Route: 065
     Dates: start: 20230313
  5. PANTOPRAZOLE SODIUM [Concomitant]
     Active Substance: PANTOPRAZOLE SODIUM
     Indication: Product used for unknown indication
     Dosage: 40 MG - 1CPR/DAY
     Route: 065
     Dates: start: 20230309
  6. PREDNISONE [Concomitant]
     Active Substance: PREDNISONE
     Indication: Product used for unknown indication
     Dosage: 25 MG - 1CPR/DAY
     Route: 065
     Dates: start: 20230318
  7. MICAFUNGIN [Concomitant]
     Active Substance: MICAFUNGIN SODIUM
     Indication: Product used for unknown indication
     Dosage: 50 MILLIGRAM DAILY; 50 MG /DAY
     Route: 065
     Dates: start: 20230306, end: 20230315
  8. BISOPROLOL FUMARATE [Concomitant]
     Active Substance: BISOPROLOL FUMARATE
     Indication: Product used for unknown indication
     Dosage: 1.25 MG - 1 CPR/DAY
     Route: 065
     Dates: start: 20230313
  9. ENOXAPARIN SODIUM [Concomitant]
     Active Substance: ENOXAPARIN SODIUM
     Indication: Product used for unknown indication
     Dosage: 8000UI 1 FL X3 /WEEK (TUE-THU-SAT)
     Route: 065
     Dates: start: 20230310
  10. ALLOPURINOL [Concomitant]
     Active Substance: ALLOPURINOL
     Indication: Product used for unknown indication
     Dosage: 300MG - 1/ CPR/DAY
     Route: 065
     Dates: start: 20230301, end: 20230315

REACTIONS (2)
  - Drug ineffective [Not Recovered/Not Resolved]
  - Klebsiella infection [Not Recovered/Not Resolved]

NARRATIVE: CASE EVENT DATE: 20230315
